FAERS Safety Report 17957722 (Version 6)
Quarter: 2022Q3

REPORT INFORMATION
  Report Type: Spontaneous
  Country: US (occurrence: US)
  Receive Date: 20200629
  Receipt Date: 20220728
  Transmission Date: 20221027
  Serious: No
  Sender: FDA-Public Use
  Company Number: US-PFIZER INC-2020248107

PATIENT
  Age: 62 Year
  Sex: Male
  Weight: 106.59 kg

DRUGS (6)
  1. CAVERJECT IMPULSE [Suspect]
     Active Substance: ALPROSTADIL
     Indication: Cardiac disorder
     Dosage: UNK, AS NEEDED, (5, UNIT: UNKNOWN)
     Dates: start: 201910
  2. CAVERJECT IMPULSE [Suspect]
     Active Substance: ALPROSTADIL
     Indication: Erectile dysfunction
     Dosage: UNK, (10 UNIT: UNKNOWN)
  3. CAVERJECT IMPULSE [Suspect]
     Active Substance: ALPROSTADIL
     Dosage: 20 UG
  4. CAVERJECT IMPULSE [Suspect]
     Active Substance: ALPROSTADIL
     Dosage: 20 UG, 3X/WEEK
  5. CAVERJECT IMPULSE [Suspect]
     Active Substance: ALPROSTADIL
     Dosage: 40 UG, AS NEEDED
  6. CAVERJECT IMPULSE [Suspect]
     Active Substance: ALPROSTADIL
     Dosage: 5 MCG, IF PARTIAL RESPONSE INCREASE BY 5 MCG INCREMENTS UNTIL SUITABLE RESPONSE. MAX OF 20 MCG/DOSE
     Dates: start: 20220726

REACTIONS (1)
  - Drug ineffective [Unknown]

NARRATIVE: CASE EVENT DATE: 20190101
